FAERS Safety Report 8307150-8 (Version None)
Quarter: 2012Q2

REPORT INFORMATION
  Report Type: 
  Country: None (occurrence: None)
  Receive Date: 20120424
  Receipt Date: 20120423
  Transmission Date: 20120825
  Serious: Yes (Hospitalization, Other)
  Sender: FDA-Public Use
  Company Number: PHHY2012HU032062

PATIENT
  Age: 77 Year
  Sex: Female

DRUGS (3)
  1. METFORMIN HCL [Concomitant]
     Dosage: UNK
  2. LETROZOLE [Suspect]
     Indication: BREAST CANCER
     Dosage: 2.5 MG, DAILY
     Dates: start: 20071201
  3. METOPROLOL SUCCINATE [Concomitant]
     Dosage: UNK

REACTIONS (7)
  - VAGINAL INFECTION [None]
  - GASTROINTESTINAL HAEMORRHAGE [None]
  - COLON ADENOMA [None]
  - NEOPLASM MALIGNANT [None]
  - ATROPHIC VULVOVAGINITIS [None]
  - BONE PAIN [None]
  - ARTHRALGIA [None]
